FAERS Safety Report 6084549-4 (Version None)
Quarter: 2009Q1

REPORT INFORMATION
  Report Type: 
  Country: None (occurrence: None)
  Receive Date: 20090219
  Receipt Date: 20090211
  Transmission Date: 20090719
  Serious: Yes (Life-Threatening)
  Sender: FDA-Public Use
  Company Number: GB-ABBOTT-09P-167-0502968-00

PATIENT
  Age: 31 Year
  Sex: Female

DRUGS (18)
  1. CLARITHROMYCIN [Suspect]
     Indication: INFECTION
     Route: 042
     Dates: start: 20090202, end: 20090202
  2. CLARITHROMYCIN [Suspect]
     Route: 048
     Dates: start: 20090129, end: 20090202
  3. VANCOMYCIN HCL [Suspect]
     Indication: INFECTION
     Route: 042
     Dates: start: 20090102, end: 20090202
  4. VANCOMYCIN HCL [Suspect]
     Route: 048
     Dates: start: 20090129, end: 20090202
  5. PENTASA [Concomitant]
     Indication: DRUG USE FOR UNKNOWN INDICATION
  6. AZAITHIOPRINE [Concomitant]
     Indication: DRUG USE FOR UNKNOWN INDICATION
     Dosage: 75MG/50MG ALTERNATE DAYS
  7. CALCICHEW D3 [Concomitant]
     Indication: DRUG USE FOR UNKNOWN INDICATION
  8. PARACETAMOL [Concomitant]
     Indication: DRUG USE FOR UNKNOWN INDICATION
  9. REMIFENTANIL [Concomitant]
     Indication: DRUG USE FOR UNKNOWN INDICATION
     Dates: start: 20090202, end: 20090202
  10. PROPOFOL [Concomitant]
     Indication: DRUG USE FOR UNKNOWN INDICATION
     Dates: start: 20090202, end: 20090202
  11. ROCURONIUM BROMIDE [Concomitant]
     Indication: DRUG USE FOR UNKNOWN INDICATION
     Dates: start: 20090202, end: 20090202
  12. ONDANSETRON [Concomitant]
     Indication: DRUG USE FOR UNKNOWN INDICATION
     Dates: start: 20090202, end: 20090202
  13. CIPROFLOXACIN [Concomitant]
     Indication: DRUG USE FOR UNKNOWN INDICATION
     Route: 042
     Dates: start: 20090202, end: 20090202
  14. CIPROFLOXACIN [Concomitant]
     Route: 048
     Dates: start: 20090129, end: 20090202
  15. FLUCLOXACILLIN [Concomitant]
     Indication: DRUG USE FOR UNKNOWN INDICATION
     Dates: start: 20090129
  16. MORPHINE [Concomitant]
     Indication: DRUG USE FOR UNKNOWN INDICATION
  17. PIRITON [Concomitant]
     Indication: DRUG USE FOR UNKNOWN INDICATION
     Route: 048
  18. PREDNISOLONE [Concomitant]
     Indication: DRUG USE FOR UNKNOWN INDICATION

REACTIONS (6)
  - BLOOD PRESSURE DECREASED [None]
  - DRUG HYPERSENSITIVITY [None]
  - EYE SWELLING [None]
  - LIP SWELLING [None]
  - TACHYCARDIA [None]
  - WHEEZING [None]
